FAERS Safety Report 16821889 (Version 1)
Quarter: 2019Q3

REPORT INFORMATION
  Report Type: Spontaneous
  Country: US (occurrence: US)
  Receive Date: 20190726
  Receipt Date: 20190726
  Transmission Date: 20191005
  Serious: Yes (Other)
  Sender: FDA-Public Use
  Company Number: None

PATIENT
  Age: 47 Year
  Sex: Male
  Weight: 127.01 kg

DRUGS (4)
  1. TRP PINKEYE RELIEF [Suspect]
     Active Substance: HOMEOPATHICS
     Indication: DRY EYE
     Dosage: ?          OTHER STRENGTH:1 DROP PER DF;QUANTITY:10 ML MILLILITRE(S);?
     Route: 047
  2. PRADAXA [Concomitant]
     Active Substance: DABIGATRAN ETEXILATE MESYLATE
  3. METOPROLOL. [Concomitant]
     Active Substance: METOPROLOL
  4. CLARITIN [Concomitant]
     Active Substance: LORATADINE

REACTIONS (2)
  - Recalled product [None]
  - Chemical burns of eye [None]

NARRATIVE: CASE EVENT DATE: 20180110
